FAERS Safety Report 8413471-0 (Version None)
Quarter: 2012Q2

REPORT INFORMATION
  Report Type: 
  Country: None (occurrence: None)
  Receive Date: 20120605
  Receipt Date: 20120528
  Transmission Date: 20120825
  Serious: Yes (Other)
  Sender: FDA-Public Use
  Company Number: JP-JNJFOC-20120512472

PATIENT
  Age: 92 Year
  Sex: Female

DRUGS (9)
  1. AMLODIPINE [Concomitant]
     Route: 048
  2. NEUQUINON [Concomitant]
     Route: 048
  3. GALANTAMINE HYDROBROMIDE [Suspect]
     Indication: DEMENTIA ALZHEIMER'S TYPE
     Route: 048
     Dates: start: 20120401, end: 20120511
  4. LOXONIN [Concomitant]
     Route: 065
  5. KETOPROFEN [Concomitant]
     Route: 062
  6. LASIX [Concomitant]
     Route: 065
  7. ANPLAG [Concomitant]
     Route: 048
  8. ONEALFA [Concomitant]
     Route: 048
  9. ALDACTONE [Concomitant]
     Route: 048

REACTIONS (2)
  - ANAEMIA [None]
  - WHITE BLOOD CELL COUNT DECREASED [None]
